FAERS Safety Report 8092014-8 (Version None)
Quarter: 2012Q1

REPORT INFORMATION
  Report Type: 
  Country: None (occurrence: None)
  Receive Date: 20120130
  Receipt Date: 20120130
  Transmission Date: 20120608
  Serious: No
  Sender: FDA-Public Use
  Company Number: None

PATIENT
  Sex: Female

DRUGS (1)
  1. CARBAMAZEPINE [Suspect]
     Indication: CONVULSION
     Dosage: 800MG TWICE A DAY ORALLY
     Route: 048
     Dates: start: 20120126

REACTIONS (2)
  - TREMOR [None]
  - PRODUCT SUBSTITUTION ISSUE [None]
